FAERS Safety Report 7183891-3 (Version None)
Quarter: 2010Q4

REPORT INFORMATION
  Report Type: 
  Country: None (occurrence: None)
  Receive Date: 20101222
  Receipt Date: 20101220
  Transmission Date: 20110411
  Serious: Yes (Other)
  Sender: FDA-Public Use
  Company Number: US-RB-017139-10

PATIENT
  Age: 67 Year
  Sex: Male

DRUGS (1)
  1. MUCINEX [Suspect]
     Dosage: PATIENT TOOK PRODUCT FOR 9 DOSES
     Route: 048

REACTIONS (1)
  - GLAUCOMA [None]
